FAERS Safety Report 5863016-4 (Version None)
Quarter: 2008Q3

REPORT INFORMATION
  Report Type: 
  Country: None (occurrence: None)
  Receive Date: 20080818
  Receipt Date: 20080620
  Transmission Date: 20090109
  Serious: No
  Sender: FDA-Public Use
  Company Number: WAES 0806USA07787

PATIENT
  Age: 58 Year
  Sex: Female

DRUGS (5)
  1. JANUVIA [Suspect]
     Indication: DIABETES MELLITUS
     Dosage: 50 MG/BID/PO
     Route: 048
     Dates: start: 20080606
  2. ACTONEL [Concomitant]
  3. CRESTOR [Concomitant]
  4. HYZAAR [Concomitant]
  5. VITAMIN D (UNSPECIFIED) [Concomitant]

REACTIONS (2)
  - DRUG INEFFECTIVE [None]
  - INAPPROPRIATE SCHEDULE OF DRUG ADMINISTRATION [None]
